FAERS Safety Report 16261427 (Version 1)
Quarter: 2019Q2

REPORT INFORMATION
  Report Type: Spontaneous
  Country: ES (occurrence: ES)
  Receive Date: 20190501
  Receipt Date: 20190501
  Transmission Date: 20190711
  Serious: Yes (Death, Other)
  Sender: FDA-Public Use
  Company Number: ES-APOPHARMA USA, INC.-2019AP013085

PATIENT
  Age: 53 Year
  Sex: Female

DRUGS (5)
  1. ALKERAN [Suspect]
     Active Substance: MELPHALAN
     Indication: STEM CELL TRANSPLANT
     Dosage: 140 MG/M2, OTHER
     Route: 042
  2. CYTARABINE. [Suspect]
     Active Substance: CYTARABINE
     Indication: STEM CELL TRANSPLANT
     Dosage: 400 MG/KG, OTHER
     Route: 042
  3. ALKERAN [Suspect]
     Active Substance: MELPHALAN
     Dosage: 140 MG, OTHER
     Route: 042
  4. BENDAMUSTINE [Suspect]
     Active Substance: BENDAMUSTINE
     Indication: STEM CELL TRANSPLANT
     Dosage: 200 MG/M2, OTHER
     Route: 042
  5. ETOPOSIDE. [Suspect]
     Active Substance: ETOPOSIDE
     Indication: STEM CELL TRANSPLANT
     Dosage: 200 MG/M2, OTHER
     Route: 042

REACTIONS (2)
  - Lung infection [Fatal]
  - Respiratory failure [Fatal]
